FAERS Safety Report 4901910-9 (Version None)
Quarter: 2006Q1

REPORT INFORMATION
  Report Type: 
  Country: None (occurrence: None)
  Receive Date: 20060202
  Receipt Date: 20060202
  Transmission Date: 20060701
  Serious: Yes (Hospitalization)
  Sender: FDA-Public Use
  Company Number: None

PATIENT
  Sex: Male
  Weight: 85.7298 kg

DRUGS (7)
  1. OXALIPLATIN 130 MG/M2 - 271 MG. [Suspect]
     Indication: RECURRENT CANCER
     Dosage: 271 MG ONE TIME IV
     Route: 042
     Dates: start: 20060131
  2. OXALIPLATIN 130 MG/M2 - 271 MG. [Suspect]
     Indication: TONSIL CANCER
     Dosage: 271 MG ONE TIME IV
     Route: 042
     Dates: start: 20060131
  3. DOCETAXEL 60MG/M2 - 125 MG [Suspect]
     Indication: RECURRENT CANCER
     Dosage: 125 MG ONE TIME IV
     Route: 042
     Dates: start: 20060131
  4. DOCETAXEL 60MG/M2 - 125 MG [Suspect]
     Indication: TONSIL CANCER
     Dosage: 125 MG ONE TIME IV
     Route: 042
     Dates: start: 20060131
  5. APREPITANT [Concomitant]
  6. DEXAMETHASONE [Concomitant]
  7. ONDANSETRON [Concomitant]

REACTIONS (4)
  - BLOOD PRESSURE INCREASED [None]
  - CHEST PAIN [None]
  - RESTLESSNESS [None]
  - TACHYCARDIA [None]
